FAERS Safety Report 19299157 (Version 1)
Quarter: 2021Q2

REPORT INFORMATION
  Report Type: Spontaneous
  Country: GB (occurrence: GB)
  Receive Date: 20210524
  Receipt Date: 20210524
  Transmission Date: 20210717
  Serious: Yes (Disabling, Other)
  Sender: FDA-Public Use
  Company Number: GB-TEVA-2021-GB-1908228

PATIENT
  Age: 6 Year
  Sex: Female
  Weight: 86.17 kg

DRUGS (2)
  1. HYDROCORTISON [Suspect]
     Active Substance: HYDROCORTISONE
     Route: 061
     Dates: start: 20080310, end: 20180101
  2. HYDROCORTISON [Suspect]
     Active Substance: HYDROCORTISONE
     Indication: ECZEMA
     Route: 061
     Dates: start: 200803, end: 201801

REACTIONS (8)
  - Steroid withdrawal syndrome [Recovered/Resolved]
  - Skin weeping [Unknown]
  - Erythema [Unknown]
  - Skin lesion [Unknown]
  - Skin infection [Unknown]
  - Medication error [Unknown]
  - Dry skin [Unknown]
  - Skin haemorrhage [Unknown]

NARRATIVE: CASE EVENT DATE: 201801
